FAERS Safety Report 9640458 (Version 1)
Quarter: 2013Q4

REPORT INFORMATION
  Report Type: Spontaneous
  Country: US (occurrence: None)
  Receive Date: 20131022
  Receipt Date: 20131022
  Transmission Date: 20140711
  Serious: Yes (Disabling)
  Sender: FDA-Public Use
  Company Number: None

PATIENT
  Age: 40 Year
  Sex: Female
  Weight: 56.7 kg

DRUGS (1)
  1. LARIAM [Suspect]
     Indication: PROPHYLAXIS
     Dosage: WEEKLY FOR 12 WEEKS?1 PILL WEEKLY
     Route: 048
     Dates: start: 19970501, end: 19970724

REACTIONS (5)
  - Depression [None]
  - Amnesia [None]
  - Fear [None]
  - Panic attack [None]
  - Fibromyalgia [None]
